FAERS Safety Report 16552087 (Version 1)
Quarter: 2019Q3

REPORT INFORMATION
  Report Type: Spontaneous
  Country: SE (occurrence: SE)
  Receive Date: 20190710
  Receipt Date: 20190710
  Transmission Date: 20191004
  Serious: Yes (Hospitalization, Other)
  Sender: FDA-Public Use
  Company Number: PHHY2019SE158374

PATIENT
  Age: 33 Year
  Sex: Female

DRUGS (8)
  1. CETIRIZINE [Concomitant]
     Active Substance: CETIRIZINE HYDROCHLORIDE
     Indication: PRODUCT USED FOR UNKNOWN INDICATION
     Dosage: UNK (1X1 VID BEHOV)
     Route: 048
     Dates: start: 20160521
  2. ALVEDON [Concomitant]
     Active Substance: ACETAMINOPHEN
     Indication: PRODUCT USED FOR UNKNOWN INDICATION
     Dosage: (1-2 VID BEHOV, H?GST 8/DYGN)
     Route: 048
     Dates: start: 20180905
  3. CYKLOKAPRON [Concomitant]
     Active Substance: TRANEXAMIC ACID
     Indication: PRODUCT USED FOR UNKNOWN INDICATION
     Dosage: UNK (2 X 3 DAGLIGEN VID BEHOV)
     Route: 048
     Dates: start: 20190129
  4. PANTOPRAZOLE [Suspect]
     Active Substance: PANTOPRAZOLE
     Indication: PRODUCT USED FOR UNKNOWN INDICATION
     Dosage: 40 MG, QD
     Route: 048
     Dates: end: 201902
  5. VENTOLINE DISKUS [Concomitant]
     Active Substance: ALBUTEROL SULFATE
     Indication: PRODUCT USED FOR UNKNOWN INDICATION
     Dosage: UNK (1 VID BEHOV, MAX 6)
     Route: 055
     Dates: start: 20160520
  6. METFORMIN [Concomitant]
     Active Substance: METFORMIN HYDROCHLORIDE
     Indication: PRODUCT USED FOR UNKNOWN INDICATION
     Dosage: 1000 MG, QD
     Route: 048
     Dates: start: 20170626
  7. AMLODIPINE [Concomitant]
     Active Substance: AMLODIPINE BESYLATE
     Indication: PRODUCT USED FOR UNKNOWN INDICATION
     Dosage: 5 MG, QD
     Route: 048
     Dates: start: 20190126
  8. LEVAXIN [Concomitant]
     Active Substance: LEVOTHYROXINE SODIUM
     Indication: PRODUCT USED FOR UNKNOWN INDICATION
     Dosage: 125 UG, QD
     Route: 048
     Dates: start: 20161117

REACTIONS (2)
  - Cutaneous vasculitis [Not Recovered/Not Resolved]
  - Vasculitis [Not Recovered/Not Resolved]

NARRATIVE: CASE EVENT DATE: 20190208
